FAERS Safety Report 17788064 (Version 1)
Quarter: 2020Q2

REPORT INFORMATION
  Report Type: Spontaneous
  Country: GB (occurrence: GB)
  Receive Date: 20200514
  Receipt Date: 20200514
  Transmission Date: 20200714
  Serious: Yes (Disabling)
  Sender: FDA-Public Use
  Company Number: GB-MYLANLABS-2020M1046449

PATIENT
  Age: 15 Year
  Sex: Male

DRUGS (4)
  1. MINOCYCLINE [Concomitant]
     Active Substance: MINOCYCLINE HYDROCHLORIDE
  2. ISOTRETINOIN. [Suspect]
     Active Substance: ISOTRETINOIN
     Indication: ACNE
     Route: 048
     Dates: start: 20200330, end: 20200405
  3. NOVORAPID [Concomitant]
     Active Substance: INSULIN ASPART
     Dosage: UNK
  4. LANTUS [Concomitant]
     Active Substance: INSULIN GLARGINE
     Dosage: UNK

REACTIONS (7)
  - Amnesia [Not Recovered/Not Resolved]
  - Cerebral ataxia [Not Recovered/Not Resolved]
  - Dysarthria [Not Recovered/Not Resolved]
  - Fine motor skill dysfunction [Unknown]
  - Coordination abnormal [Not Recovered/Not Resolved]
  - Alanine aminotransferase increased [Unknown]
  - Intention tremor [Unknown]

NARRATIVE: CASE EVENT DATE: 20200403
